FAERS Safety Report 13274243 (Version 2)
Quarter: 2017Q3

REPORT INFORMATION
  Report Type: Spontaneous
  Country: IN (occurrence: IN)
  Receive Date: 20170227
  Receipt Date: 20170714
  Transmission Date: 20171127
  Serious: Yes (Death, Other)
  Sender: FDA-Public Use
  Company Number: IN-PFIZER INC-2017081844

PATIENT
  Age: 50 Year
  Sex: Female

DRUGS (3)
  1. PALBACE [Suspect]
     Active Substance: PALBOCICLIB
     Dosage: 125 MG, ONCE A DAY
     Route: 048
     Dates: end: 20170210
  2. FULVESTRANT. [Concomitant]
     Active Substance: FULVESTRANT
     Dosage: 500 MG, MONTHLY
     Dates: start: 20170210
  3. PALBACE [Suspect]
     Active Substance: PALBOCICLIB
     Indication: BREAST CANCER METASTATIC
     Dosage: 125 MG, ONCE A DAY
     Route: 048
     Dates: start: 20170112, end: 20170127

REACTIONS (6)
  - Neoplasm progression [Fatal]
  - Facial paralysis [Unknown]
  - Product use in unapproved indication [Unknown]
  - Pain [Recovered/Resolved]
  - Chills [Not Recovered/Not Resolved]
  - Pain in extremity [Recovered/Resolved]
